FAERS Safety Report 21175850 (Version 2)
Quarter: 2022Q3

REPORT INFORMATION
  Report Type: Spontaneous
  Country: JP (occurrence: JP)
  Receive Date: 20220805
  Receipt Date: 20220808
  Transmission Date: 20221027
  Serious: Yes (Other)
  Sender: FDA-Public Use
  Company Number: JP-ABBVIE-22K-087-4493289-00

PATIENT
  Age: 30 Year
  Sex: Female

DRUGS (7)
  1. HUMIRA [Suspect]
     Active Substance: ADALIMUMAB
     Indication: Psoriatic arthropathy
     Route: 058
  2. RINVOQ [Suspect]
     Active Substance: UPADACITINIB
     Indication: Product used for unknown indication
     Route: 048
  3. SECUKINUMAB [Suspect]
     Active Substance: SECUKINUMAB
     Indication: Skin lesion
     Route: 065
  4. SECUKINUMAB [Suspect]
     Active Substance: SECUKINUMAB
     Indication: Skin lesion
  5. BRODALUMAB [Suspect]
     Active Substance: BRODALUMAB
     Indication: Product used for unknown indication
     Route: 065
  6. GOLIMUMAB [Suspect]
     Active Substance: GOLIMUMAB
     Indication: Product used for unknown indication
     Route: 065
  7. CYCLOSPORINE [Concomitant]
     Active Substance: CYCLOSPORINE
     Indication: Skin disorder
     Route: 065

REACTIONS (7)
  - Suicidal ideation [Unknown]
  - Ureterolithiasis [Unknown]
  - C-reactive protein increased [Unknown]
  - Injection site reaction [Unknown]
  - Psoriatic arthropathy [Recovering/Resolving]
  - Arthralgia [Recovering/Resolving]
  - COVID-19 [Unknown]
